FAERS Safety Report 7123648-2 (Version None)
Quarter: 2010Q4

REPORT INFORMATION
  Report Type: 
  Country: None (occurrence: None)
  Receive Date: 20101125
  Receipt Date: 20101119
  Transmission Date: 20110411
  Serious: Yes (Disabling)
  Sender: FDA-Public Use
  Company Number: FR-BRISTOL-MYERS SQUIBB COMPANY-14516439

PATIENT
  Age: 42 Year
  Sex: Female
  Weight: 58 kg

DRUGS (4)
  1. IXABEPILONE [Suspect]
     Indication: BREAST CANCER
     Dosage: THERAPY START DATE: 11-MAR-2008
     Route: 042
     Dates: start: 20080422, end: 20080422
  2. CYCLOPHOSPHAMIDE [Suspect]
     Indication: BREAST CANCER
     Dosage: THERAPY START DATE: 08JAN08
     Route: 042
     Dates: start: 20080219, end: 20080219
  3. EPIRUBICIN [Suspect]
     Indication: BREAST CANCER
     Dosage: THERAPY START DATE: 08JAN08
     Route: 042
     Dates: start: 20080219, end: 20080219
  4. FLUOROURACIL [Suspect]
     Indication: BREAST CANCER
     Dosage: THERAPY START DATE: 08JAN08
     Route: 042
     Dates: start: 20080219, end: 20080219

REACTIONS (2)
  - HYPOACUSIS [None]
  - TINNITUS [None]
